FAERS Safety Report 7612326-9 (Version None)
Quarter: 2011Q3

REPORT INFORMATION
  Report Type: 
  Country: None (occurrence: None)
  Receive Date: 20110715
  Receipt Date: 20110712
  Transmission Date: 20111222
  Serious: Yes (Death, Other)
  Sender: FDA-Public Use
  Company Number: US-CELGENEUS-163-21880-11050251

PATIENT
  Sex: Female
  Weight: 72.186 kg

DRUGS (11)
  1. PROCHLORPERAZINE MALEATE [Concomitant]
     Indication: NAUSEA
     Dosage: 10 MILLIGRAM
     Route: 048
  2. HYDROCODONE BITARTRATE AND ACETAMINOPHEN [Concomitant]
     Indication: PAIN
     Dosage: 7.5-500MG
     Route: 048
  3. DEXAMETHASONE [Concomitant]
     Dosage: 20 MILLIGRAM
     Route: 048
     Dates: start: 20110401
  4. REVLIMID [Suspect]
     Indication: MULTIPLE MYELOMA
     Dosage: 25 MILLIGRAM
     Route: 048
     Dates: start: 20110201
  5. NYSTATIN [Concomitant]
     Indication: MULTIPLE MYELOMA
     Dosage: 5 MILLILITER
  6. AMITRIPTYLINE HCL [Concomitant]
     Dosage: 25 MILLIGRAM
     Route: 048
  7. MS CONTIN [Concomitant]
     Dosage: 15 MILLIGRAM
     Route: 048
  8. DEXAMETHASONE [Concomitant]
     Indication: PAIN
     Dosage: 40 MILLIGRAM
     Route: 048
     Dates: start: 20110301
  9. BORTEZOMIB [Concomitant]
     Indication: MULTIPLE MYELOMA
     Dosage: 2.3 MILLIGRAM
     Route: 065
  10. KYTRIL [Concomitant]
     Indication: MULTIPLE MYELOMA
     Dosage: 1000 MILLIGRAM
     Route: 065
  11. ZOLEDRONIC ACID [Concomitant]
     Indication: MULTIPLE MYELOMA
     Dosage: 4 MILLIGRAM
     Route: 065
     Dates: start: 20110304

REACTIONS (2)
  - CARDIAC ARREST [None]
  - PANCYTOPENIA [None]
